FAERS Safety Report 6369314-2 (Version None)
Quarter: 2009Q3

REPORT INFORMATION
  Report Type: 
  Country: None (occurrence: None)
  Receive Date: 20090916
  Receipt Date: 20090901
  Transmission Date: 20100115
  Serious: Yes (Life-Threatening, Hospitalization)
  Sender: FDA-Public Use
  Company Number: FABR-1000844

PATIENT
  Age: 36 Year
  Sex: Male
  Weight: 40 kg

DRUGS (14)
  1. FABRAZYME [Suspect]
     Indication: FABRY'S DISEASE
     Dosage: SEE IMAGE
     Route: 042
     Dates: start: 20090301
  2. FABRAZYME [Suspect]
     Indication: FABRY'S DISEASE
     Dosage: SEE IMAGE
     Route: 042
     Dates: start: 20090301
  3. FABRAZYME [Suspect]
     Indication: FABRY'S DISEASE
     Dosage: SEE IMAGE
     Route: 042
     Dates: start: 20090301
  4. FABRAZYME [Suspect]
  5. FABRAZYME [Suspect]
  6. FABRAZYME [Suspect]
  7. FABRAZYME [Suspect]
  8. FABRAZYME [Suspect]
  9. FABRAZYME [Suspect]
  10. OLANZAPINE [Concomitant]
  11. RAMIPRIL [Concomitant]
  12. AMITRIPTYLINE HYDROCHLORIDE [Concomitant]
  13. ZOLPIDEM [Concomitant]
  14. OMEPRAZOLE [Concomitant]

REACTIONS (6)
  - ANAPHYLACTIC SHOCK [None]
  - CHEST PAIN [None]
  - INFUSION RELATED REACTION [None]
  - PANIC ATTACK [None]
  - STRIDOR [None]
  - TINNITUS [None]
